FAERS Safety Report 7508893-6 (Version None)
Quarter: 2011Q2

REPORT INFORMATION
  Report Type: 
  Country: None (occurrence: None)
  Receive Date: 20110527
  Receipt Date: 20110525
  Transmission Date: 20111010
  Serious: Yes (Death, Other)
  Sender: FDA-Public Use
  Company Number: PHHY2009JP32392

PATIENT
  Sex: Female
  Weight: 40 kg

DRUGS (14)
  1. EXJADE [Suspect]
     Dosage: 250 MG/DAY
     Route: 048
     Dates: start: 20080829, end: 20081028
  2. GANATON [Concomitant]
     Dosage: 150 MG, UNK
     Route: 048
     Dates: start: 20080830
  3. ALLOPURINOL [Concomitant]
     Dosage: 100 MG, UNK
     Route: 048
     Dates: start: 20080830
  4. EXJADE [Suspect]
     Dosage: 375 MG/DAY
     Route: 048
     Dates: start: 20081029, end: 20090101
  5. PERSANTIN [Concomitant]
     Dosage: 75 MG, UNK
     Route: 048
     Dates: start: 20080830, end: 20081120
  6. ALFACALCIDOL [Concomitant]
     Indication: APLASTIC ANAEMIA
     Dosage: 0.5 UG, UNK
     Route: 048
     Dates: start: 20080830
  7. KREMEZIN [Concomitant]
     Dosage: 6 G, UNK
     Route: 048
     Dates: start: 20080830
  8. EXJADE [Suspect]
     Dosage: 500 MG/DAY
     Route: 048
     Dates: start: 20090104
  9. PREDNISOLONE [Concomitant]
     Indication: APLASTIC ANAEMIA
     Dosage: 5 MG, UNK
     Route: 048
     Dates: start: 20080830
  10. DANAZOL [Concomitant]
     Indication: APLASTIC ANAEMIA
     Dosage: 100 MG, UNK
     Route: 048
     Dates: start: 20080830, end: 20081120
  11. LASIX [Concomitant]
     Dosage: 10 MG, UNK
     Route: 048
     Dates: start: 20080830
  12. EXJADE [Suspect]
     Indication: APLASTIC ANAEMIA
     Dosage: 125 MG/DAY
     Route: 048
     Dates: start: 20080718, end: 20080828
  13. NEORAL [Concomitant]
     Indication: APLASTIC ANAEMIA
     Dosage: 50 MG, UNK
     Route: 048
     Dates: start: 20080830, end: 20081120
  14. MARZULENE [Concomitant]
     Dosage: 2 G, UNK
     Route: 048
     Dates: start: 20080830

REACTIONS (5)
  - DISEASE PROGRESSION [None]
  - BLOOD PRESSURE DECREASED [None]
  - CIRCULATORY COLLAPSE [None]
  - FALL [None]
  - RESPIRATORY ARREST [None]
